FAERS Safety Report 20794531 (Version 6)
Quarter: 2023Q1

REPORT INFORMATION
  Report Type: Spontaneous
  Country: US (occurrence: US)
  Receive Date: 20220506
  Receipt Date: 20230104
  Transmission Date: 20230418
  Serious: No
  Sender: FDA-Public Use
  Company Number: US-BRISTOL-MYERS SQUIBB COMPANY-2022-021625

PATIENT
  Age: 70 Year
  Sex: Female

DRUGS (4)
  1. REVLIMID [Suspect]
     Active Substance: LENALIDOMIDE
     Indication: Plasma cell myeloma
     Dosage: 21 DAYS, 7 DAYS OFF
     Route: 048
  2. REVLIMID [Suspect]
     Active Substance: LENALIDOMIDE
     Dosage: TAKE 1 CAPSULE ON DAYS 1-21 OF EACH CYCLE.FOLLOWED BY 7 DAYS OFF. TAKE WHOLE WITH WATER AT THE SAME
     Route: 048
  3. REVLIMID [Suspect]
     Active Substance: LENALIDOMIDE
     Dosage: FREQ: TAKE 1 WHOLE CAPSULE BY MOUTH WITH WATER AT THE SAME TIME EACH DAY EVERY DAY ON DAYS 1-21  THE
     Route: 048
     Dates: start: 20220107
  4. REVLIMID [Suspect]
     Active Substance: LENALIDOMIDE
     Dosage: FREQ: TAKE 1 WHOLE CAPSULE BY MOUTH WITH WATER AT THE SAME TIME EACH DAY EVERY DAY ON DAYS 1-21  THE
     Route: 048

REACTIONS (4)
  - Blood calcium increased [Recovered/Resolved]
  - Product dose omission issue [Unknown]
  - Bronchitis [Unknown]
  - Nasopharyngitis [Unknown]
